FAERS Safety Report 19330893 (Version 1)
Quarter: 2021Q2

REPORT INFORMATION
  Report Type: Spontaneous
  Country: GB (occurrence: GB)
  Receive Date: 20210528
  Receipt Date: 20210528
  Transmission Date: 20210717
  Serious: Yes (Other)
  Sender: FDA-Public Use
  Company Number: GB-PFIZER INC-2021548878

PATIENT
  Age: 48 Year
  Sex: Female
  Weight: 65 kg

DRUGS (12)
  1. MOMETASONE [Concomitant]
     Active Substance: MOMETASONE
     Indication: EAR INFECTION
     Dates: start: 202102
  2. TOZINAMERAN. [Suspect]
     Active Substance: TOZINAMERAN
     Indication: COVID-19 IMMUNISATION
     Dosage: 1ST DOSE, SINGLE
     Dates: start: 20210205, end: 20210205
  3. BECONASE AQ [Concomitant]
     Active Substance: BECLOMETHASONE DIPROPIONATE MONOHYDRATE
     Indication: EAR PAIN
     Dates: start: 202101, end: 202102
  4. CODEINE [Concomitant]
     Active Substance: CODEINE
     Indication: EAR PAIN
     Dosage: UNK
     Dates: start: 202102, end: 202103
  5. AMOXICILLIN. [Suspect]
     Active Substance: AMOXICILLIN
     Indication: EAR INFECTION
     Dosage: UNK
     Dates: start: 202101, end: 202101
  6. AMOXICILLIN. [Suspect]
     Active Substance: AMOXICILLIN
     Dosage: UNK
     Dates: start: 20210226, end: 20210226
  7. UTROGESTAN [Concomitant]
     Active Substance: PROGESTERONE
     Indication: MENOPAUSE
     Dates: start: 202012
  8. ESTROGEL [Concomitant]
     Active Substance: ESTRADIOL
     Indication: MENOPAUSE
     Dates: start: 202012
  9. SALBUTAMOL [Concomitant]
     Active Substance: ALBUTEROL
     Indication: DYSPNOEA
     Dates: start: 202101, end: 202102
  10. SUMATRIPTAN. [Concomitant]
     Active Substance: SUMATRIPTAN
     Indication: MIGRAINE
     Dates: start: 2005
  11. DOXYCYCLINE MONOHYDRATE [Suspect]
     Active Substance: DOXYCYCLINE
     Indication: EAR INFECTION
     Dates: start: 20210226, end: 20210226
  12. CODEINE [Concomitant]
     Active Substance: CODEINE
     Indication: LABYRINTHITIS
     Dosage: UNK
     Dates: start: 202101, end: 202101

REACTIONS (8)
  - Drug hypersensitivity [Unknown]
  - Swollen tongue [Recovering/Resolving]
  - Seasonal allergy [Unknown]
  - Peripheral swelling [Recovering/Resolving]
  - Erythema [Unknown]
  - Pruritus [Unknown]
  - Depressed level of consciousness [Unknown]
  - Hypersensitivity [Recovering/Resolving]

NARRATIVE: CASE EVENT DATE: 20210226
